FAERS Safety Report 6202891-0 (Version None)
Quarter: 2009Q2

REPORT INFORMATION
  Report Type: 
  Country: None (occurrence: None)
  Receive Date: 20090520
  Receipt Date: 20090505
  Transmission Date: 20091009
  Serious: Yes (Life-Threatening, Hospitalization)
  Sender: FDA-Public Use
  Company Number: 2009S1007077

PATIENT
  Age: 44 Year
  Sex: Female

DRUGS (14)
  1. SOTALOL HCL [Suspect]
     Indication: SUPRAVENTRICULAR TACHYCARDIA
     Dosage: 80 MG; TWICE A DAY;
  2. ISOFLURANE [Suspect]
     Indication: ANAESTHESIA
  3. ALFACALCIDOL [Concomitant]
  4. ASPIRIN [Concomitant]
  5. DOMPERIDONE [Concomitant]
  6. DOXAZOSIN MESYLATE [Concomitant]
  7. FRUSEMIDE [Concomitant]
  8. NITROFURANTOIN [Concomitant]
  9. RABEPRAZOLE SODIUM [Concomitant]
  10. SIMVASTATIN [Concomitant]
  11. SODIUM BICARBONATE [Concomitant]
  12. ALFENTANIL [Concomitant]
  13. ATRACURIUM [Concomitant]
  14. PROPOFOL [Concomitant]

REACTIONS (10)
  - ACCIDENTAL OVERDOSE [None]
  - ARRHYTHMIA [None]
  - BRADYCARDIA [None]
  - CATHETER RELATED COMPLICATION [None]
  - DRUG TOXICITY [None]
  - ELECTROCARDIOGRAM QT PROLONGED [None]
  - HYPOKALAEMIA [None]
  - TRANSPLANT FAILURE [None]
  - VENTRICULAR FIBRILLATION [None]
  - VENTRICULAR TACHYCARDIA [None]
